FAERS Safety Report 6322221-3 (Version None)
Quarter: 2009Q3

REPORT INFORMATION
  Report Type: 
  Country: None (occurrence: None)
  Receive Date: 20090824
  Receipt Date: 20090206
  Transmission Date: 20100115
  Serious: Yes (Other)
  Sender: FDA-Public Use
  Company Number: US-ABBOTT-09P-163-0500725-00

PATIENT
  Sex: Female
  Weight: 98.064 kg

DRUGS (16)
  1. NIASPAN [Suspect]
     Indication: BLOOD CHOLESTEROL INCREASED
     Dates: start: 20090124, end: 20090125
  2. CALCIUM WITH D [Concomitant]
     Indication: DRUG USE FOR UNKNOWN INDICATION
  3. LISINOPRIL [Concomitant]
     Indication: DRUG USE FOR UNKNOWN INDICATION
  4. METFORMIN HCL [Concomitant]
     Indication: DRUG USE FOR UNKNOWN INDICATION
  5. FERROUS SULFATE TAB [Concomitant]
     Indication: DRUG USE FOR UNKNOWN INDICATION
  6. PLAVIX [Concomitant]
     Indication: DRUG USE FOR UNKNOWN INDICATION
  7. FUROSEMIDE [Concomitant]
     Indication: DRUG USE FOR UNKNOWN INDICATION
  8. FLUOXETINE [Concomitant]
     Indication: DRUG USE FOR UNKNOWN INDICATION
  9. LEVOTHYROXINE SODIUM [Concomitant]
     Indication: DRUG USE FOR UNKNOWN INDICATION
  10. LYRICA [Concomitant]
     Indication: DRUG USE FOR UNKNOWN INDICATION
  11. PANTOPRAZOLE SODIUM [Concomitant]
     Indication: DRUG USE FOR UNKNOWN INDICATION
  12. RANITIDINE HCL [Concomitant]
     Indication: DRUG USE FOR UNKNOWN INDICATION
  13. AMBIEN [Concomitant]
     Indication: DRUG USE FOR UNKNOWN INDICATION
  14. TRIMADOL [Concomitant]
     Indication: DRUG USE FOR UNKNOWN INDICATION
     Dosage: AS NEEDED
  15. HUMALOG [Concomitant]
     Indication: DRUG USE FOR UNKNOWN INDICATION
     Dosage: SLIDING SCALE
     Route: 058
  16. LENTIS INSULIN [Concomitant]
     Indication: DRUG USE FOR UNKNOWN INDICATION
     Route: 050

REACTIONS (5)
  - ABDOMINAL DISCOMFORT [None]
  - DYSPNOEA [None]
  - NAUSEA [None]
  - PHARYNGEAL OEDEMA [None]
  - RASH [None]
